FAERS Safety Report 22146491 (Version 2)
Quarter: 2024Q1

REPORT INFORMATION
  Report Type: Spontaneous
  Country: US (occurrence: US)
  Receive Date: 20230328
  Receipt Date: 20240208
  Transmission Date: 20240410
  Serious: Yes (Other)
  Sender: FDA-Public Use
  Company Number: US-SUN PHARMACEUTICAL INDUSTRIES LTD-2023R1-382492

PATIENT
  Age: 39 Year
  Sex: Male

DRUGS (6)
  1. PREDNISONE [Suspect]
     Active Substance: PREDNISONE
     Indication: Hypoglycaemia
     Dosage: 60 MILLIGRAM, DAILY
     Route: 048
  2. DEXTROSE [Suspect]
     Active Substance: DEXTROSE\DEXTROSE MONOHYDRATE
     Indication: Hypoglycaemia
     Dosage: 225 ML/HR
     Route: 042
  3. FLUOROURACIL [Suspect]
     Active Substance: FLUOROURACIL
     Indication: Chemotherapy
     Dosage: UNK
     Route: 065
  4. LEUCOVORIN [Suspect]
     Active Substance: LEUCOVORIN\LEUCOVORIN CALCIUM
     Indication: Chemotherapy
     Dosage: UNK
     Route: 065
  5. IRINOTECAN [Suspect]
     Active Substance: IRINOTECAN
     Indication: Chemotherapy
     Dosage: UNK
     Route: 065
  6. LANREOTIDE [Suspect]
     Active Substance: LANREOTIDE
     Indication: Hypoglycaemia
     Dosage: UNK
     Route: 065

REACTIONS (1)
  - Drug ineffective [Unknown]
